FAERS Safety Report 16272261 (Version 1)
Quarter: 2019Q2

REPORT INFORMATION
  Report Type: Spontaneous
  Country: ES (occurrence: ES)
  Receive Date: 20190503
  Receipt Date: 20190503
  Transmission Date: 20190711
  Serious: Yes (Life-Threatening, Hospitalization)
  Sender: FDA-Public Use
  Company Number: ES-TEVA-2019-ES-1045819

PATIENT
  Age: 73 Year
  Sex: Male

DRUGS (8)
  1. CICLOFOSFAMIDA (120A) [Interacting]
     Active Substance: CYCLOPHOSPHAMIDE
     Indication: HODGKIN^S DISEASE
     Route: 042
     Dates: start: 20180917, end: 20190207
  2. ETOPOSIDO (518A) [Interacting]
     Active Substance: ETOPOSIDE
     Indication: HODGKIN^S DISEASE
     Route: 048
     Dates: start: 20181001, end: 20190225
  3. VINBLASTINA SULFATO (807SU) [Interacting]
     Active Substance: VINBLASTINE SULFATE
     Indication: HODGKIN^S DISEASE
     Route: 042
     Dates: start: 20180917, end: 20190207
  4. BLEOMICINA SULFATO (68SU) [Interacting]
     Active Substance: BLEOMYCIN SULFATE
     Indication: HODGKIN^S DISEASE
     Route: 042
     Dates: start: 20181001, end: 20190221
  5. PROCARBAZINA HIDROCLORURO (651CH) [Interacting]
     Active Substance: PROCARBAZINE HYDROCHLORIDE
     Indication: HODGKIN^S DISEASE
     Route: 048
     Dates: start: 20180917, end: 20190211
  6. FILGRASTIM (7089A) [Concomitant]
     Active Substance: FILGRASTIM
     Indication: PROPHYLAXIS
     Route: 058
     Dates: start: 20181018, end: 20190204
  7. METHOTREXATE. [Interacting]
     Active Substance: METHOTREXATE
     Indication: HODGKIN^S DISEASE
     Route: 042
     Dates: start: 20181001, end: 20190221
  8. PREDNISONA (886A) [Suspect]
     Active Substance: PREDNISONE
     Indication: HODGKIN^S DISEASE
     Route: 048
     Dates: start: 20180917, end: 20190211

REACTIONS (3)
  - Agranulocytosis [Recovered/Resolved]
  - Drug interaction [Unknown]
  - Pneumocystis jirovecii pneumonia [Not Recovered/Not Resolved]

NARRATIVE: CASE EVENT DATE: 20190304
